FAERS Safety Report 7689733-1 (Version None)
Quarter: 2011Q3

REPORT INFORMATION
  Report Type: 
  Country: None (occurrence: None)
  Receive Date: 20110817
  Receipt Date: 20110808
  Transmission Date: 20111222
  Serious: Yes (Other)
  Sender: FDA-Public Use
  Company Number: FR-ALLERGAN-1110694US

PATIENT
  Age: 47 Year
  Sex: Male

DRUGS (1)
  1. BIMATOPROST AND TIMOLOL MALEATE [Suspect]
     Indication: GLAUCOMA
     Dosage: UNK
     Route: 047
     Dates: start: 20101207

REACTIONS (3)
  - SKIN FISSURES [None]
  - SKIN CHAPPED [None]
  - DERMATOSIS [None]
